FAERS Safety Report 21789210 (Version 1)
Quarter: 2022Q4

REPORT INFORMATION
  Report Type: Report from Study
  Country: DE (occurrence: DE)
  Receive Date: 20221228
  Receipt Date: 20221228
  Transmission Date: 20230112
  Serious: Yes (Hospitalization)
  Sender: FDA-Public Use
  Company Number: DE-EMA-DD-20221208-7180173-073039

PATIENT
  Sex: Female

DRUGS (12)
  1. METHOTREXATE [Suspect]
     Active Substance: METHOTREXATE
     Indication: Rheumatoid arthritis
     Dosage: 10 MILLIGRAM (T9);
     Dates: start: 20200818
  2. METHOTREXATE [Suspect]
     Active Substance: METHOTREXATE
     Dosage: 10 MILLIGRAM (T3);
     Dates: start: 20170728
  3. METHOTREXATE [Suspect]
     Active Substance: METHOTREXATE
     Dosage: 10 MILLIGRAM (T2);
     Dates: start: 20170120
  4. METHOTREXATE [Suspect]
     Active Substance: METHOTREXATE
     Dosage: 10 MILLIGRAM (T6);
     Dates: start: 20190211
  5. METHOTREXATE [Suspect]
     Active Substance: METHOTREXATE
     Dosage: 10 MILLIGRAM (T4);
     Dates: start: 20180111
  6. METHOTREXATE [Suspect]
     Active Substance: METHOTREXATE
     Dosage: 10 MILLIGRAM (T1);
     Dates: start: 20161206
  7. METHOTREXATE [Suspect]
     Active Substance: METHOTREXATE
     Dosage: 10 MILLIGRAM (T10);
     Dates: start: 20210311
  8. METHOTREXATE [Suspect]
     Active Substance: METHOTREXATE
     Dosage: 10 MILLIGRAM (T7);
     Dates: start: 20190911
  9. METHOTREXATE [Suspect]
     Active Substance: METHOTREXATE
     Dosage: 10 MILLIGRAM (T0);
     Dates: start: 20160807
  10. METHOTREXATE [Suspect]
     Active Substance: METHOTREXATE
     Dosage: 10 MILLIGRAM (T5);
     Dates: start: 20180713
  11. METHOTREXATE [Suspect]
     Active Substance: METHOTREXATE
     Dosage: 10 MILLIGRAM (T8);
     Dates: start: 20200304
  12. MARCUMAR [Suspect]
     Active Substance: PHENPROCOUMON
     Indication: Rheumatoid arthritis
     Dosage: UNK;

REACTIONS (11)
  - Gastritis [Recovered/Resolved]
  - Epistaxis [Recovered/Resolved]
  - Chronic obstructive pulmonary disease [Recovered/Resolved]
  - COVID-19 pneumonia [Recovered/Resolved]
  - Hyperparathyroidism [Unknown]
  - Hepatic steatosis [Unknown]
  - Cystitis [Unknown]
  - Anaemia [Unknown]
  - Hepatic enzyme increased [Unknown]
  - Nasopharyngitis [Unknown]
  - Alopecia [Recovered/Resolved]

NARRATIVE: CASE EVENT DATE: 20171130
